FAERS Safety Report 15917983 (Version 1)
Quarter: 2019Q1

REPORT INFORMATION
  Report Type: Spontaneous
  Country: FR (occurrence: FR)
  Receive Date: 20190205
  Receipt Date: 20190205
  Transmission Date: 20190417
  Serious: Yes (Other)
  Sender: FDA-Public Use
  Company Number: FR-SA-2019SA025567

PATIENT
  Age: 69 Year
  Sex: Female
  Weight: 92 kg

DRUGS (19)
  1. ARIPIPRAZOLE. [Concomitant]
     Active Substance: ARIPIPRAZOLE
  2. RAMIPRIL. [Concomitant]
     Active Substance: RAMIPRIL
  3. PANTOPRAZOLE [Concomitant]
     Active Substance: PANTOPRAZOLE
  4. FUROSEMIDE. [Concomitant]
     Active Substance: FUROSEMIDE
  5. OXAZEPAM. [Concomitant]
     Active Substance: OXAZEPAM
  6. GENTAMICIN SULFATE. [Suspect]
     Active Substance: GENTAMICIN SULFATE
     Indication: STAPHYLOCOCCAL INFECTION
     Dosage: 150 MG, QD
     Route: 042
     Dates: start: 20181221, end: 20181224
  7. VANCOMYCINE [VANCOMYCIN] [Suspect]
     Active Substance: VANCOMYCIN
     Indication: STAPHYLOCOCCAL INFECTION
     Dosage: 2 G, QD
     Route: 042
     Dates: start: 20181221, end: 20190101
  8. GAVISCON [ALUMINIUM HYDROXIDE;CALCIUM CARBONATE;SODIUM ALGINATE;SODIUM [Concomitant]
  9. OFLOXACINE WINTHROP [Suspect]
     Active Substance: OFLOXACIN
     Indication: STAPHYLOCOCCAL INFECTION
     Dosage: 400 MG, QD
     Route: 048
     Dates: start: 20190102, end: 20190105
  10. KARDEGIC [Concomitant]
     Active Substance: ASPIRIN DL-LYSINE
  11. SPIRONOLACTONE. [Concomitant]
     Active Substance: SPIRONOLACTONE
  12. CETIRIZINE HYDROCHLORIDE. [Concomitant]
     Active Substance: CETIRIZINE HYDROCHLORIDE
  13. NEFOPAM HYDROCHLORIDE [Concomitant]
     Active Substance: NEFOPAM HYDROCHLORIDE
  14. RIFAMPICIN [Suspect]
     Active Substance: RIFAMPIN
     Indication: STAPHYLOCOCCAL INFECTION
     Dosage: 1200 MG, QD
     Route: 042
     Dates: start: 20181228, end: 20190101
  15. CLOXACILLIN [Suspect]
     Active Substance: CLOXACILLIN
     Indication: STAPHYLOCOCCAL INFECTION
     Dosage: 12 G, QD
     Route: 042
     Dates: start: 20190102, end: 20190105
  16. PARACETAMOL [Concomitant]
     Active Substance: ACETAMINOPHEN
  17. PRAVASTATIN SODIUM. [Concomitant]
     Active Substance: PRAVASTATIN SODIUM
  18. MIRTAZAPINE. [Concomitant]
     Active Substance: MIRTAZAPINE
  19. LOVENOX [Concomitant]
     Active Substance: ENOXAPARIN SODIUM

REACTIONS (4)
  - Erythema [Recovered/Resolved]
  - Skin reaction [Recovered/Resolved]
  - Burning sensation [Recovered/Resolved]
  - Urticaria [Recovered/Resolved]

NARRATIVE: CASE EVENT DATE: 201901
